FAERS Safety Report 8667608 (Version 2)
Quarter: 2013Q4

REPORT INFORMATION
  Report Type: Spontaneous
  Country: GB (occurrence: GB)
  Receive Date: 20120717
  Receipt Date: 20131108
  Transmission Date: 20140711
  Serious: Yes (Other)
  Sender: FDA-Public Use
  Company Number: GB-009507513-1207GBR002026

PATIENT
  Age: 80 Year
  Sex: Female

DRUGS (7)
  1. ZOCOR [Suspect]
     Indication: HYPERTENSION
  2. CLOPIDOGREL [Concomitant]
  3. FYBOGEL [Concomitant]
  4. JANUVIA [Concomitant]
  5. LANSOPRAZOLE [Concomitant]
  6. LISINOPRIL [Concomitant]
     Indication: HYPERTENSION
     Dosage: 20 MG, UNK
  7. METFORMIN [Concomitant]

REACTIONS (2)
  - Abasia [Unknown]
  - Pain in extremity [Unknown]
